FAERS Safety Report 12919045 (Version 3)
Quarter: 2016Q4

REPORT INFORMATION
  Report Type: Spontaneous
  Country: US (occurrence: US)
  Receive Date: 20161108
  Receipt Date: 20161117
  Transmission Date: 20170207
  Serious: Yes (Hospitalization)
  Sender: FDA-Public Use
  Company Number: US-HORIZON-RAV-0233-2016

PATIENT
  Age: 30 Year
  Sex: Female

DRUGS (3)
  1. MVI [Concomitant]
     Active Substance: VITAMINS
  2. CITRULLINE [Concomitant]
     Active Substance: CITRULLINE
  3. RAVICTI [Suspect]
     Active Substance: GLYCEROL PHENYLBUTYRATE
     Indication: ORNITHINE TRANSCARBAMOYLASE DEFICIENCY
     Dosage: INCREASED TO 4 ML FOUR TIMES DAILY

REACTIONS (6)
  - Ammonia increased [Recovering/Resolving]
  - Agitation [Not Recovered/Not Resolved]
  - Nausea [Not Recovered/Not Resolved]
  - Hypophagia [Recovering/Resolving]
  - Influenza like illness [Unknown]
  - Anxiety [Unknown]

NARRATIVE: CASE EVENT DATE: 20160927
